FAERS Safety Report 4781410-X (Version None)
Quarter: 2005Q3

REPORT INFORMATION
  Report Type: 
  Country: None (occurrence: None)
  Receive Date: 20050914
  Receipt Date: 20050111
  Transmission Date: 20060218
  Serious: Yes (Other)
  Sender: FDA-Public Use
  Company Number: 163-20785-05010195

PATIENT
  Age: 67 Year
  Sex: Male

DRUGS (2)
  1. THALOMID [Suspect]
     Indication: MULTIPLE MYELOMA
     Dosage: 100 MG, DAILY, ORAL
     Route: 048
     Dates: start: 20041118, end: 20050106
  2. RADIATION (UNKNOWN) [Concomitant]

REACTIONS (3)
  - CONSTIPATION [None]
  - PARAESTHESIA [None]
  - PULMONARY EMBOLISM [None]
